FAERS Safety Report 9159540 (Version 2)
Quarter: 2013Q1

REPORT INFORMATION
  Report Type: Spontaneous
  Country: US (occurrence: None)
  Receive Date: 20130212
  Receipt Date: 20130220
  Transmission Date: 20140127
  Serious: Yes (Hospitalization)
  Sender: FDA-Public Use
  Company Number: AUR-APL-2013-01229

PATIENT
  Age: 25 Year
  Sex: Female

DRUGS (2)
  1. DIVALPROEX (VALPROATE SEMISODIUM) [Suspect]
     Indication: PRODUCT USED FOR UNKNOWN INDICATION
     Dosage: STOPPED
  2. ZONISAMIDE (ZONISAMIDE) [Concomitant]

REACTIONS (10)
  - Hepatotoxicity [None]
  - Convulsion [None]
  - Mental status changes [None]
  - Lethargy [None]
  - Disorientation [None]
  - Metabolic acidosis [None]
  - Hyperammonaemia [None]
  - Hepatitis [None]
  - Thrombocytopenia [None]
  - Coagulopathy [None]
